FAERS Safety Report 4928180-X (Version None)
Quarter: 2006Q1

REPORT INFORMATION
  Report Type: 
  Country: None (occurrence: None)
  Receive Date: 20060223
  Receipt Date: 20060202
  Transmission Date: 20060701
  Serious: Yes (Life-Threatening, Hospitalization, Other)
  Sender: FDA-Public Use
  Company Number: US_010973572

PATIENT
  Age: 24 Year
  Sex: Female
  Weight: 76.6 kg

DRUGS (5)
  1. ZYPREXA [Suspect]
     Indication: DEPRESSED MOOD
     Dosage: 20 MG, DAILY (1/D), ORAL
     Route: 048
     Dates: start: 20010808, end: 20010903
  2. LEXOTAN (BROMAZEPAM) [Concomitant]
  3. SILECE (FLUNITRAZEPAM) [Concomitant]
  4. LENDORM [Concomitant]
  5. PURSENNID (SENNA LEAF) [Concomitant]

REACTIONS (4)
  - CONVULSION [None]
  - JOINT DISLOCATION [None]
  - LOSS OF CONSCIOUSNESS [None]
  - VOMITING [None]
